FAERS Safety Report 25110055 (Version 1)
Quarter: 2025Q1

REPORT INFORMATION
  Report Type: Spontaneous
  Country: US (occurrence: US)
  Receive Date: 20250324
  Receipt Date: 20250324
  Transmission Date: 20250408
  Serious: No
  Sender: AMGEN
  Company Number: US-AMGEN-USASP2025054833

PATIENT
  Sex: Male

DRUGS (3)
  1. AVSOLA [Suspect]
     Active Substance: INFLIXIMAB-AXXQ
     Indication: Product used for unknown indication
     Route: 065
  2. AVSOLA [Suspect]
     Active Substance: INFLIXIMAB-AXXQ
     Route: 065
  3. AVSOLA [Suspect]
     Active Substance: INFLIXIMAB-AXXQ
     Route: 065

REACTIONS (2)
  - Therapy interrupted [Unknown]
  - Weight abnormal [Unknown]
